FAERS Safety Report 7452835-9 (Version None)
Quarter: 2011Q2

REPORT INFORMATION
  Report Type: 
  Country: None (occurrence: None)
  Receive Date: 20110502
  Receipt Date: 20110415
  Transmission Date: 20111010
  Serious: Yes (Hospitalization, Other)
  Sender: FDA-Public Use
  Company Number: US-BAYER-2011-012043

PATIENT
  Age: 56 Year
  Sex: Female
  Weight: 136 kg

DRUGS (8)
  1. ARIMIDEX [Concomitant]
     Indication: BREAST CANCER
     Dosage: UNK
     Dates: start: 20070101
  2. SERTRALINE [Concomitant]
     Indication: DEPRESSION
     Dosage: UNK
     Dates: start: 19980101
  3. YAZ [Suspect]
     Dosage: UNK
     Dates: start: 20050101, end: 20090101
  4. HYDROCHLOROTHIAZIDE [Concomitant]
     Indication: HYPERTENSION
     Dosage: UNK
     Dates: start: 19980101
  5. LISINOPRIL [Concomitant]
     Indication: HYPERTENSION
     Dosage: UNK
     Dates: start: 19980101
  6. YAZ [Suspect]
     Indication: PRODUCT USED FOR UNKNOWN INDICATION
     Dosage: UNK
     Dates: start: 20050101, end: 20070401
  7. METOPROLOL SUCCINATE [Concomitant]
     Indication: HYPERTENSION
     Dosage: UNK
     Dates: start: 19980101
  8. YASMIN [Suspect]
     Indication: PRODUCT USED FOR UNKNOWN INDICATION
     Dosage: UNK
     Dates: start: 20050101, end: 20090101

REACTIONS (5)
  - INJURY [None]
  - PULMONARY EMBOLISM [None]
  - QUALITY OF LIFE DECREASED [None]
  - PAIN [None]
  - THROMBOSIS [None]
